FAERS Safety Report 14535744 (Version 1)
Quarter: 2018Q1

REPORT INFORMATION
  Report Type: Spontaneous
  Country: US (occurrence: US)
  Receive Date: 20180215
  Receipt Date: 20180215
  Transmission Date: 20180509
  Serious: Yes (Hospitalization, Other)
  Sender: FDA-Public Use
  Company Number: US-STANDARD HOMEOPATHIC COMPANY-2042030

PATIENT
  Age: 10 Month
  Sex: Male

DRUGS (4)
  1. HYLANDS BABY CALMING TABLETS [Suspect]
     Active Substance: HOMEOPATHICS
     Indication: IRRITABILITY
     Route: 048
  2. HYLANDS BABY CALMING TABLETS [Suspect]
     Active Substance: HOMEOPATHICS
     Indication: INSOMNIA
     Route: 048
  3. HYLANDS BABY CALMING TABLETS [Suspect]
     Active Substance: HOMEOPATHICS
     Indication: AGITATION
     Route: 048
  4. HYLANDS BABY CALMING TABLETS [Suspect]
     Active Substance: HOMEOPATHICS
     Indication: RESTLESSNESS
     Route: 048

REACTIONS (3)
  - Muscle spasms [None]
  - Pyrexia [None]
  - Seizure [None]

NARRATIVE: CASE EVENT DATE: 2017
